FAERS Safety Report 10072238 (Version 1)
Quarter: 2014Q2

REPORT INFORMATION
  Report Type: Report from Study
  Country: US (occurrence: US)
  Receive Date: 20140411
  Receipt Date: 20140411
  Transmission Date: 20141212
  Serious: Yes (Other)
  Sender: FDA-Public Use
  Company Number: US-ROCHE-1382168

PATIENT
  Age: 19 Year
  Sex: Male

DRUGS (4)
  1. ACTEMRA [Suspect]
     Indication: RHEUMATOID ARTHRITIS
     Route: 042
  2. ACTEMRA [Suspect]
     Indication: JUVENILE IDIOPATHIC ARTHRITIS
  3. ACTEMRA [Suspect]
     Indication: RHEUMATOID ARTHRITIS
     Route: 058
  4. ACTEMRA [Suspect]
     Indication: JUVENILE IDIOPATHIC ARTHRITIS

REACTIONS (1)
  - Rheumatoid arthritis [Not Recovered/Not Resolved]
